FAERS Safety Report 7704311-3 (Version None)
Quarter: 2011Q3

REPORT INFORMATION
  Report Type: 
  Country: None (occurrence: None)
  Receive Date: 20110823
  Receipt Date: 20110812
  Transmission Date: 20111222
  Serious: Yes (Death, Life-Threatening, Hospitalization)
  Sender: FDA-Public Use
  Company Number: PHHO2011FR10697

PATIENT
  Sex: Male
  Weight: 85 kg

DRUGS (14)
  1. CYCLOPHOSPHAMIDE [Concomitant]
     Indication: ACUTE LYMPHOCYTIC LEUKAEMIA
     Dosage: 600 MG, BID
     Route: 042
     Dates: start: 20110613, end: 20110616
  2. DOXORUBICIN HCL [Concomitant]
     Indication: ACUTE LYMPHOCYTIC LEUKAEMIA
     Dosage: 100 MG, QD
     Route: 042
     Dates: start: 20110617, end: 20110617
  3. IMATINIB MESYLATE [Suspect]
     Dosage: UNK
     Dates: start: 20110601
  4. IMATINIB MESYLATE [Suspect]
     Dosage: 600 MG, QD
     Route: 048
     Dates: end: 20110621
  5. METHOTREXATE [Concomitant]
     Dosage: 15 MG, QD
     Route: 037
     Dates: start: 20110620, end: 20110620
  6. METHOTREXATE [Concomitant]
     Indication: ACUTE LYMPHOCYTIC LEUKAEMIA
     Dosage: 15 MG, QD
     Route: 037
     Dates: start: 20110613, end: 20110613
  7. IMATINIB MESYLATE [Suspect]
     Indication: ACUTE LYMPHOCYTIC LEUKAEMIA
     Dosage: 400 MG, BID
     Dates: start: 20110606
  8. AMIKACIN [Concomitant]
  9. VINCRISTINE [Concomitant]
     Indication: ACUTE LYMPHOCYTIC LEUKAEMIA
     Dosage: 2 MG, QD
     Route: 042
     Dates: start: 20110616, end: 20110616
  10. CYTARABINE [Concomitant]
     Dosage: 40 MG, QD
     Route: 037
     Dates: start: 20110620, end: 20110620
  11. DEPO-MEDROL [Concomitant]
     Indication: ACUTE LYMPHOCYTIC LEUKAEMIA
     Dosage: 40 MG, UNK
     Dates: start: 20110620
  12. CEFTAZIDIME SODIUM [Concomitant]
  13. CYTARABINE [Concomitant]
     Indication: ACUTE LYMPHOCYTIC LEUKAEMIA
     Dosage: 40 MG, QD
     Route: 037
     Dates: start: 20110603, end: 20110613
  14. VANCOMYCIN [Concomitant]

REACTIONS (8)
  - PANCYTOPENIA [None]
  - SUBILEUS [None]
  - RENAL FAILURE ACUTE [None]
  - THROMBOCYTOPENIA [None]
  - ACUTE RESPIRATORY DISTRESS SYNDROME [None]
  - MULTI-ORGAN FAILURE [None]
  - SEPTIC SHOCK [None]
  - SPINAL HAEMATOMA [None]
